FAERS Safety Report 8304758-0 (Version None)
Quarter: 2012Q2

REPORT INFORMATION
  Report Type: 
  Country: None (occurrence: None)
  Receive Date: 20120423
  Receipt Date: 20120419
  Transmission Date: 20120825
  Serious: No
  Sender: FDA-Public Use
  Company Number: US-TEVA-333442USA

PATIENT
  Sex: Female
  Weight: 56.75 kg

DRUGS (4)
  1. PLAN B ONE-STEP [Suspect]
     Indication: POST COITAL CONTRACEPTION
     Dosage: 1.5 MILLIGRAM;
     Route: 048
     Dates: start: 20120218, end: 20120218
  2. LEVONORGESTREL [Suspect]
     Indication: POST COITAL CONTRACEPTION
     Dosage: 1.5 MILLIGRAM;
     Route: 048
     Dates: start: 20120225, end: 20120225
  3. MULTI-VITAMIN [Concomitant]
     Indication: SUPPLEMENTATION THERAPY
  4. PLAN B ONE-STEP [Suspect]
     Dosage: 1.5 MILLIGRAM;
     Route: 048
     Dates: start: 20120404, end: 20120404

REACTIONS (2)
  - MENSTRUATION IRREGULAR [None]
  - MUSCLE SPASMS [None]
